FAERS Safety Report 18257160 (Version 1)
Quarter: 2020Q3

REPORT INFORMATION
  Report Type: Spontaneous
  Country: CA (occurrence: CA)
  Receive Date: 20200911
  Receipt Date: 20200911
  Transmission Date: 20201103
  Serious: Yes (Hospitalization, Other)
  Sender: FDA-Public Use
  Company Number: CA-PFIZER INC-2020349704

PATIENT
  Age: 55 Year
  Sex: Female

DRUGS (1)
  1. FILGRASTIM [Suspect]
     Active Substance: FILGRASTIM
     Indication: LYMPHOMA
     Dosage: UNK

REACTIONS (4)
  - Cardiac infection [Unknown]
  - Systemic infection [Unknown]
  - Staphylococcal infection [Unknown]
  - Transient ischaemic attack [Unknown]
